FAERS Safety Report 7322105-8 (Version None)
Quarter: 2011Q1

REPORT INFORMATION
  Report Type: 
  Country: None (occurrence: None)
  Receive Date: 20110216
  Receipt Date: 20110203
  Transmission Date: 20110831
  Serious: No
  Sender: FDA-Public Use
  Company Number: 026463

PATIENT
  Age: 53 Year
  Sex: Male

DRUGS (1)
  1. KEPPRA [Suspect]
     Dosage: (500 G BID)
     Dates: start: 20090101

REACTIONS (1)
  - NO ADVERSE EVENT [None]
